FAERS Safety Report 7318656-2 (Version None)
Quarter: 2011Q1

REPORT INFORMATION
  Report Type: 
  Country: None (occurrence: None)
  Receive Date: 20110228
  Receipt Date: 20110223
  Transmission Date: 20110831
  Serious: Yes (Hospitalization)
  Sender: FDA-Public Use
  Company Number: IT-BRISTOL-MYERS SQUIBB COMPANY-15568686

PATIENT
  Sex: Female

DRUGS (1)
  1. ETOPOSIDE [Suspect]

REACTIONS (4)
  - ASTHENIA [None]
  - BONE MARROW FAILURE [None]
  - DECREASED APPETITE [None]
  - BONE PAIN [None]
